FAERS Safety Report 14230098 (Version 9)
Quarter: 2018Q2

REPORT INFORMATION
  Report Type: Spontaneous
  Country: IL (occurrence: IL)
  Receive Date: 20171128
  Receipt Date: 20180526
  Transmission Date: 20180711
  Serious: Yes (Hospitalization, Other)
  Sender: FDA-Public Use
  Company Number: IL-ACTELION-A-CH2017-162795

PATIENT
  Age: 64 Year
  Sex: Female

DRUGS (18)
  1. UPTRAVI [Suspect]
     Active Substance: SELEXIPAG
     Indication: PULMONARY ARTERIAL HYPERTENSION
     Dosage: 600 ?G, BID
     Route: 048
     Dates: start: 20171112, end: 20171116
  2. UPTRAVI [Suspect]
     Active Substance: SELEXIPAG
     Dosage: 400 ?G, BID
     Route: 048
     Dates: start: 20171221
  3. OMEPRADEX [Concomitant]
     Active Substance: OMEPRAZOLE
  4. NEOBLOC [Concomitant]
  5. SEROQUEL [Concomitant]
     Active Substance: QUETIAPINE FUMARATE
  6. XARELTO [Concomitant]
     Active Substance: RIVAROXABAN
  7. FUSID [Concomitant]
     Active Substance: FUROSEMIDE
  8. AEROVENT [Concomitant]
  9. UPTRAVI [Suspect]
     Active Substance: SELEXIPAG
     Dosage: 800 ?G, BID
     Route: 048
     Dates: start: 20180514, end: 20180517
  10. VENTOLIN [Concomitant]
     Active Substance: ALBUTEROL SULFATE
  11. UPTRAVI [Suspect]
     Active Substance: SELEXIPAG
     Dosage: 200 ?G, BID
     Route: 048
     Dates: start: 20171214
  12. ALDACTONE [Concomitant]
     Active Substance: SPIRONOLACTONE
  13. UPTRAVI [Suspect]
     Active Substance: SELEXIPAG
     Dosage: 1600 ?G, BID
     Route: 048
     Dates: start: 20180416, end: 20180508
  14. AMLODIPINE BESILATE [Concomitant]
     Active Substance: AMLODIPINE BESYLATE
  15. BISOPROLOL [Concomitant]
     Active Substance: BISOPROLOL
  16. FLIXOTIDE [Concomitant]
     Active Substance: FLUTICASONE PROPIONATE
  17. UPTRAVI [Suspect]
     Active Substance: SELEXIPAG
     Dosage: 800 ?G, BID
     Route: 048
     Dates: start: 20180119
  18. NEXIUM [Concomitant]
     Active Substance: ESOMEPRAZOLE MAGNESIUM

REACTIONS (11)
  - Dyspnoea [Recovering/Resolving]
  - Ocular hyperaemia [Recovered/Resolved]
  - Ocular icterus [Recovered/Resolved]
  - Pulmonary hypertension [Recovering/Resolving]
  - Hepatic enzyme increased [Not Recovered/Not Resolved]
  - Alanine aminotransferase increased [Not Recovered/Not Resolved]
  - Musculoskeletal pain [Not Recovered/Not Resolved]
  - Pulmonary oedema [Recovering/Resolving]
  - Pleural effusion [Recovered/Resolved]
  - Haemoglobin decreased [Recovered/Resolved]
  - Aspartate aminotransferase [Not Recovered/Not Resolved]

NARRATIVE: CASE EVENT DATE: 20171116
